FAERS Safety Report 9466240 (Version 2)
Quarter: 2013Q3

REPORT INFORMATION
  Report Type: Spontaneous
  Country: CA (occurrence: CA)
  Receive Date: 20130820
  Receipt Date: 20130827
  Transmission Date: 20140515
  Serious: No
  Sender: FDA-Public Use
  Company Number: CA-PFIZER INC-2013238804

PATIENT
  Age: 75 Year
  Sex: Male

DRUGS (14)
  1. TECTA [Suspect]
     Dosage: 40 MG, 1X/DAY
     Route: 065
     Dates: start: 20130728, end: 20130731
  2. INSULIN [Concomitant]
     Dosage: UNK
     Route: 058
     Dates: start: 20081002
  3. TYLENOL [Concomitant]
     Dosage: (THRICE IN A DAY AS REQUIRED)
     Route: 048
     Dates: start: 20100611
  4. ZYLOPRIM [Concomitant]
     Dosage: 300 MG, 1X/DAY
     Route: 048
     Dates: start: 20090710
  5. LIPITOR [Concomitant]
     Dosage: 40 MG, 1X/DAY
     Route: 048
     Dates: start: 20130606
  6. NOVO-BISOPROLOL [Concomitant]
     Dosage: 0.5 DF, 1X/DAY
     Route: 048
     Dates: start: 20130802
  7. VITAMIN-B12 [Concomitant]
     Dosage: MONTHLY
     Dates: start: 20070924
  8. FLEXERLL [Concomitant]
     Dosage: 10 MG, 3X/DAY
     Route: 048
     Dates: start: 20080814
  9. CARDIZEM CD [Concomitant]
     Dosage: 180 MG, 1X/DAY
     Route: 048
     Dates: start: 20081004
  10. PRINIVIL [Concomitant]
     Dosage: 10 MG, 1X/DAY
     Route: 048
     Dates: start: 20061005
  11. NITRODUR [Concomitant]
     Dosage: UNK
     Route: 061
     Dates: start: 20070514
  12. NITROLINGUAL [Concomitant]
     Dosage: (AS REQUIRED)
     Route: 048
     Dates: start: 20080814
  13. ZANTAC [Concomitant]
     Dosage: 150 MG, 2X/DAY
     Route: 048
     Dates: start: 20061005
  14. APO-ZOPLICLONE [Concomitant]
     Dosage: EVERY EVENING AS REQUIRED
     Dates: start: 20081002

REACTIONS (1)
  - VIIth nerve paralysis [Recovered/Resolved]
